FAERS Safety Report 7407599-1 (Version None)
Quarter: 2011Q2

REPORT INFORMATION
  Report Type: 
  Country: None (occurrence: None)
  Receive Date: 20110405
  Receipt Date: 20110325
  Transmission Date: 20111010
  Serious: Yes (Other)
  Sender: FDA-Public Use
  Company Number: 10-601

PATIENT
  Sex: Male

DRUGS (2)
  1. PAXIL [Concomitant]
  2. ALEVE [Suspect]
     Indication: ARTHRALGIA
     Dosage: 220 MG, BID, ORAL
     Route: 048
     Dates: start: 20100701

REACTIONS (4)
  - HEPATIC PAIN [None]
  - RENAL PAIN [None]
  - PRODUCT COMMINGLING [None]
  - BACK PAIN [None]
